FAERS Safety Report 8000767-X (Version None)
Quarter: 2011Q4

REPORT INFORMATION
  Report Type: 
  Country: None (occurrence: None)
  Receive Date: 20111222
  Receipt Date: 20111216
  Transmission Date: 20120403
  Serious: Yes (Death)
  Sender: FDA-Public Use
  Company Number: FR-JNJFOC-20111201025

PATIENT
  Sex: Male
  Weight: 60 kg

DRUGS (4)
  1. AN UNKNOWN MEDICATION [Concomitant]
     Indication: PRODUCT USED FOR UNKNOWN INDICATION
     Route: 048
     Dates: start: 20110822, end: 20110826
  2. ABIRATERONE ACETATE [Suspect]
     Indication: PROSTATE CANCER
     Route: 048
     Dates: start: 20110615, end: 20110815
  3. ABIRATERONE ACETATE [Suspect]
     Route: 048
  4. OXYCONTIN [Concomitant]
     Indication: PAIN
     Route: 048
     Dates: start: 20110101, end: 20110830

REACTIONS (4)
  - PAIN [None]
  - OEDEMA PERIPHERAL [None]
  - PROSTATE CANCER [None]
  - DRUG INEFFECTIVE [None]
